FAERS Safety Report 10007153 (Version 1)
Quarter: 2014Q1

REPORT INFORMATION
  Report Type: Spontaneous
  Country: US (occurrence: None)
  Receive Date: 20140311
  Receipt Date: 20140311
  Transmission Date: 20141002
  Serious: Yes (Other)
  Sender: FDA-Public Use
  Company Number: 2014SA028091

PATIENT
  Age: 63 Year
  Sex: Female

DRUGS (1)
  1. CAPZASIN HP ARTHRITIS PAIN RELIEF [Suspect]
     Indication: MUSCULOSKELETAL PAIN

REACTIONS (2)
  - Chemical injury [None]
  - Chemical burn of skin [None]
